FAERS Safety Report 9117950 (Version 1)
Quarter: 2013Q1

REPORT INFORMATION
  Report Type: Spontaneous
  Country: FR (occurrence: FR)
  Receive Date: 20130225
  Receipt Date: 20130225
  Transmission Date: 20140127
  Serious: Yes (Hospitalization)
  Sender: FDA-Public Use
  Company Number: FR-ABBOTT-13P-056-1052539-00

PATIENT
  Age: 65 Year
  Sex: Male

DRUGS (4)
  1. NORVIR [Suspect]
     Indication: HIV INFECTION
     Route: 048
     Dates: start: 20010602, end: 20130118
  2. REYATAZ [Suspect]
     Indication: HIV INFECTION
     Dates: start: 20040724, end: 20130118
  3. DIDANOSINE [Suspect]
     Indication: HIV INFECTION
     Route: 048
     Dates: start: 19981118, end: 20130118
  4. LAMIVUDINE [Suspect]
     Indication: HIV INFECTION
     Route: 048
     Dates: start: 19981118, end: 20130118

REACTIONS (1)
  - Cholecystitis acute [Recovered/Resolved with Sequelae]
